FAERS Safety Report 4492078-4 (Version None)
Quarter: 2004Q4

REPORT INFORMATION
  Report Type: 
  Country: None (occurrence: None)
  Receive Date: 20041029
  Receipt Date: 20041013
  Transmission Date: 20050328
  Serious: Yes (Hospitalization)
  Sender: FDA-Public Use
  Company Number: 2004-DE-05541BY

PATIENT
  Age: 72 Year
  Sex: Male

DRUGS (4)
  1. KINZALMONO               (TELMISARTAN) [Suspect]
     Indication: HYPERTENSION
     Dosage: 80 MG, PO
     Route: 048
     Dates: start: 20031030, end: 20040607
  2. SOTALOL HCL [Concomitant]
  3. LORIDEM         (LORAZEPAM) [Concomitant]
  4. DIOVANE         (VALSARTAN) [Concomitant]

REACTIONS (8)
  - ANAEMIA [None]
  - ANOREXIA [None]
  - BLOOD CHLORIDE DECREASED [None]
  - BLOOD SODIUM DECREASED [None]
  - ELECTROLYTE IMBALANCE [None]
  - FATIGUE [None]
  - INSOMNIA [None]
  - MARKEDLY REDUCED DIETARY INTAKE [None]
